FAERS Safety Report 25426006 (Version 2)
Quarter: 2025Q4

REPORT INFORMATION
  Report Type: Spontaneous
  Country: EU (occurrence: EU)
  Receive Date: 20250612
  Receipt Date: 20251229
  Transmission Date: 20260118
  Serious: Yes (Life-Threatening, Hospitalization, Other)
  Sender: AUROBINDO
  Company Number: EU-AFSSAPS-MP2025000818

PATIENT
  Age: 33 Year
  Sex: Male
  Weight: 72.4 kg

DRUGS (5)
  1. TRAMADOL HYDROCHLORIDE [Suspect]
     Active Substance: TRAMADOL HYDROCHLORIDE
     Indication: Product used for unknown indication
     Dosage: 900 MILLIGRAM, ONCE A DAY
     Route: 061
     Dates: start: 20250509, end: 20250509
  2. ACETAMINOPHEN [Suspect]
     Active Substance: ACETAMINOPHEN
     Indication: Product used for unknown indication
     Dosage: 12 GRAM
     Route: 061
     Dates: start: 20250509, end: 20250509
  3. IBUPROFEN [Suspect]
     Active Substance: IBUPROFEN
     Indication: Product used for unknown indication
     Dosage: UNK
     Route: 061
     Dates: start: 20250509, end: 20250509
  4. DESLORATADINE [Suspect]
     Active Substance: DESLORATADINE
     Indication: Poisoning deliberate
     Dosage: 15 DOSAGE FORM, ONCE A DAY
     Route: 061
     Dates: start: 20250509, end: 20250509
  5. LAMALINE (ACETAMINOPHEN\CAFFEINE\OPIUM) [Suspect]
     Active Substance: ACETAMINOPHEN\CAFFEINE\OPIUM
     Indication: Poisoning deliberate
     Dosage: 34 DOSAGE FORM, ONCE A DAY
     Route: 061
     Dates: start: 20250509, end: 20250509

REACTIONS (4)
  - Renal tubular necrosis [Recovered/Resolved]
  - Poisoning deliberate [Recovered/Resolved]
  - Acute hepatic failure [Recovered/Resolved]
  - Hepatitis acute [Unknown]

NARRATIVE: CASE EVENT DATE: 20250509
